FAERS Safety Report 4486163-0 (Version None)
Quarter: 2004Q4

REPORT INFORMATION
  Report Type: 
  Country: None (occurrence: None)
  Receive Date: 20041026
  Receipt Date: 20041020
  Transmission Date: 20050328
  Serious: Yes (Disabling, Other)
  Sender: FDA-Public Use
  Company Number: GB-MERCK-0410GBR00249

PATIENT
  Age: 83 Year
  Sex: Male

DRUGS (5)
  1. VIOXX [Suspect]
     Indication: OSTEOARTHRITIS
     Route: 048
     Dates: start: 20030827, end: 20041001
  2. BISOPROLOL [Concomitant]
     Route: 065
  3. DOTHIEPIN HYDROCHLORIDE [Concomitant]
     Route: 065
  4. ACETAMINOPHEN AND PROPOXYPHENE HYDROCHLORIDE [Concomitant]
     Route: 065
  5. PROCHLORPERAZINE MALEATE [Concomitant]
     Route: 065

REACTIONS (2)
  - CEREBROVASCULAR ACCIDENT [None]
  - VISUAL FIELD DEFECT [None]
